FAERS Safety Report 25556483 (Version 2)
Quarter: 2025Q3

REPORT INFORMATION
  Report Type: Spontaneous
  Country: US (occurrence: US)
  Receive Date: 20250715
  Receipt Date: 20250715
  Transmission Date: 20251020
  Serious: Yes (Death, Hospitalization)
  Sender: AMGEN
  Company Number: US-AMGEN-USASP2025134511

PATIENT
  Age: 43 Year
  Sex: Female

DRUGS (1)
  1. NEULASTA [Suspect]
     Active Substance: PEGFILGRASTIM
     Indication: Prophylaxis
     Route: 065
     Dates: start: 20250428

REACTIONS (6)
  - Death [Fatal]
  - Gait disturbance [Unknown]
  - Pain in extremity [Unknown]
  - Staphylococcal infection [Unknown]
  - Dehydration [Unknown]
  - Drug ineffective [Unknown]

NARRATIVE: CASE EVENT DATE: 20250428
